FAERS Safety Report 5150249-8 (Version None)
Quarter: 2006Q4

REPORT INFORMATION
  Report Type: 
  Country: None (occurrence: None)
  Receive Date: 20061108
  Receipt Date: 20061030
  Transmission Date: 20070319
  Serious: Yes (Other)
  Sender: FDA-Public Use
  Company Number: 2006133052

PATIENT

DRUGS (1)
  1. LIPITOR [Suspect]

REACTIONS (2)
  - EYE DISORDER [None]
  - PIGMENTATION DISORDER [None]
